FAERS Safety Report 7775353-7 (Version None)
Quarter: 2011Q3

REPORT INFORMATION
  Report Type: 
  Country: None (occurrence: None)
  Receive Date: 20110923
  Receipt Date: 20110911
  Transmission Date: 20111222
  Serious: Yes (Other)
  Sender: FDA-Public Use
  Company Number: PHHY2011ES81334

PATIENT
  Age: 35 Year
  Sex: Male

DRUGS (10)
  1. METHYLPREDNISOLONE [Concomitant]
     Dosage: 125 MG, UNK
  2. PREDNISONE [Concomitant]
     Dosage: 60 MG, UNK
  3. BASILIXIMAB [Suspect]
     Dosage: 20 MG, UNK
  4. METHYLPREDNISOLONE [Concomitant]
     Dosage: 250 MG, UNK
  5. MYCOPHENOLATE MOFETIL [Concomitant]
     Dosage: 1.5 G/ DAY
  6. TACROLIMUS [Concomitant]
     Dosage: 6 MG, UNK
  7. TACROLIMUS [Concomitant]
     Dosage: 8 TO 10 NG/ML
  8. METHYLPREDNISOLONE [Concomitant]
     Dosage: 500 MG, UNK
  9. PREDNISONE [Concomitant]
     Dosage: 10 MG/ DAY
  10. VALGANCICLOVIR [Concomitant]
     Dosage: 900 MG/ DAY

REACTIONS (8)
  - ERYTHEMA [None]
  - HAEMATOMA [None]
  - SKIN GRAFT REJECTION [None]
  - HAEMORRHAGE [None]
  - PAIN [None]
  - PYREXIA [None]
  - OEDEMA [None]
  - RENAL FAILURE [None]
